FAERS Safety Report 10668319 (Version 1)
Quarter: 2014Q4

REPORT INFORMATION
  Report Type: Spontaneous
  Country: US (occurrence: None)
  Receive Date: 20141219
  Receipt Date: 20141219
  Transmission Date: 20150529
  Serious: Yes (Other)
  Sender: FDA-Public Use
  Company Number: None

PATIENT
  Age: 48 Year
  Sex: Male

DRUGS (1)
  1. MELOXICAM. [Suspect]
     Active Substance: MELOXICAM
     Indication: BACK PAIN
     Dosage: 1 TABLET
     Route: 048
     Dates: start: 20141203, end: 20141218

REACTIONS (7)
  - Myalgia [None]
  - Visual impairment [None]
  - Asthenia [None]
  - Weight increased [None]
  - Blister [None]
  - Swelling [None]
  - Influenza [None]

NARRATIVE: CASE EVENT DATE: 20141203
